FAERS Safety Report 25194905 (Version 1)
Quarter: 2025Q2

REPORT INFORMATION
  Report Type: Report from Study
  Country: US (occurrence: US)
  Receive Date: 20250415
  Receipt Date: 20250415
  Transmission Date: 20250716
  Serious: Yes (Other)
  Sender: ABBVIE
  Company Number: US-ABBVIE-5808259

PATIENT
  Age: 65 Year
  Sex: Male

DRUGS (1)
  1. HUMIRA [Suspect]
     Active Substance: ADALIMUMAB
     Indication: Psoriatic arthropathy
     Route: 058
     Dates: start: 20110701

REACTIONS (7)
  - Shoulder operation [Recovering/Resolving]
  - Back disorder [Unknown]
  - Skin laceration [Recovering/Resolving]
  - Road traffic accident [Recovering/Resolving]
  - Wound infection [Unknown]
  - Medical device implantation [Recovering/Resolving]
  - Medical device site pain [Recovering/Resolving]

NARRATIVE: CASE EVENT DATE: 20240201
